FAERS Safety Report 6111172-5 (Version None)
Quarter: 2009Q1

REPORT INFORMATION
  Report Type: 
  Country: None (occurrence: None)
  Receive Date: 20090311
  Receipt Date: 20081016
  Transmission Date: 20090719
  Serious: No
  Sender: FDA-Public Use
  Company Number: US-KINGPHARMUSA00001-K200801203

PATIENT
  Sex: Female

DRUGS (3)
  1. ALTACE [Suspect]
     Indication: HYPERTENSION
     Dosage: 2.5 MG, UNK
  2. FISH OIL [Concomitant]
  3. CALCIUM [Concomitant]
     Dosage: UNK, UNK

REACTIONS (2)
  - BLOOD PRESSURE DECREASED [None]
  - HEPATIC CYST [None]
